FAERS Safety Report 5099179-0 (Version None)
Quarter: 2006Q3

REPORT INFORMATION
  Report Type: 
  Country: None (occurrence: None)
  Receive Date: 20060728
  Receipt Date: 20060329
  Transmission Date: 20061208
  Serious: No
  Sender: FDA-Public Use
  Company Number: COT_0555_2006

PATIENT
  Age: 47 Year
  Sex: Male
  Weight: 114.76 kg

DRUGS (8)
  1. VENTAVIS [Suspect]
     Indication: PULMONARY HYPERTENSION
     Dosage: 2.5 MCG ONCE IH
     Route: 055
     Dates: start: 20050509, end: 20050509
  2. VENTAVIS [Suspect]
     Indication: PULMONARY HYPERTENSION
     Dosage: 5 MCG 5XD IH
     Route: 055
     Dates: start: 20050509
  3. SPIRONOLACTONE [Concomitant]
  4. HYDROCODONE BITARTRATE + ACETAMINOPHEN [Concomitant]
  5. LASIX [Concomitant]
  6. METOLAZONE [Concomitant]
  7. COUMADIN [Concomitant]
  8. TRACLEER [Concomitant]

REACTIONS (1)
  - SOMNOLENCE [None]
